FAERS Safety Report 7357331-5 (Version None)
Quarter: 2011Q1

REPORT INFORMATION
  Report Type: 
  Country: None (occurrence: None)
  Receive Date: 20110308
  Receipt Date: 20110222
  Transmission Date: 20110831
  Serious: Yes (Death)
  Sender: FDA-Public Use
  Company Number: 2011030012

PATIENT
  Age: 22 Year
  Sex: Female

DRUGS (4)
  1. ALCOHOL (ALCOHOL) [Suspect]
  2. OXYCODONE HCL [Suspect]
  3. CARISOPRODOL [Suspect]
  4. TETRAHYDROCANNABINOL (TETRAHYDROCANNABINOL) [Suspect]

REACTIONS (2)
  - TOXICITY TO VARIOUS AGENTS [None]
  - ACCIDENTAL OVERDOSE [None]
